FAERS Safety Report 5347825-6 (Version None)
Quarter: 2007Q2

REPORT INFORMATION
  Report Type: 
  Country: None (occurrence: None)
  Receive Date: 20070515
  Receipt Date: 20070227
  Transmission Date: 20071010
  Serious: Yes (Other)
  Sender: FDA-Public Use
  Company Number: 484563

PATIENT
  Age: 45 Year
  Sex: Male

DRUGS (6)
  1. NAPROXEN [Suspect]
     Indication: DRUG USE FOR UNKNOWN INDICATION
     Dates: start: 20060717
  2. TRAMADOL HCL [Suspect]
     Indication: DRUG USE FOR UNKNOWN INDICATION
     Dates: start: 20060717
  3. MUSCLE RELAXANT      (MUSCLE RELAXANT NOS) [Suspect]
     Indication: DRUG USE FOR UNKNOWN INDICATION
     Dates: start: 20060717
  4. BENZODIAZEPINE       (BENZODIAZEPINE NOS) [Suspect]
     Indication: DRUG USE FOR UNKNOWN INDICATION
     Dates: start: 20060717
  5. SUSPECTED DRUG     (GENERIC UNKNOWN) [Suspect]
     Indication: DRUG USE FOR UNKNOWN INDICATION
  6. ETHANOL           (ALCOHOL) [Suspect]
     Indication: DRUG USE FOR UNKNOWN INDICATION

REACTIONS (5)
  - DEPRESSED LEVEL OF CONSCIOUSNESS [None]
  - ELECTROCARDIOGRAM QT CORRECTED INTERVAL PROLONGED [None]
  - INTENTIONAL DRUG MISUSE [None]
  - LETHARGY [None]
  - SOMNOLENCE [None]
